FAERS Safety Report 14250134 (Version 3)
Quarter: 2018Q2

REPORT INFORMATION
  Report Type: Spontaneous
  Country: CZ (occurrence: CZ)
  Receive Date: 20171205
  Receipt Date: 20180627
  Transmission Date: 20180711
  Serious: Yes (Hospitalization, Disabling, Other)
  Sender: FDA-Public Use
  Company Number: CZ-ASTRAZENECA-2017SF20443

PATIENT
  Sex: Female

DRUGS (14)
  1. HELICID [Suspect]
     Active Substance: OMEPRAZOLE
     Indication: GASTROINTESTINAL PAIN
     Route: 048
     Dates: start: 201311
  2. TRITTICO [Concomitant]
     Active Substance: TRAZODONE HYDROCHLORIDE
     Dates: start: 201405, end: 201405
  3. PROSULPIN [Suspect]
     Active Substance: SULPIRIDE
     Indication: SOMATIC SYMPTOM DISORDER
     Dosage: 1-2X A DAY
     Route: 065
     Dates: start: 20131228, end: 20140126
  4. AMITRIPTYLINE [Suspect]
     Active Substance: AMITRIPTYLINE
     Dosage: ORIGINALLY 1X A DAY, THEN LOWERED TO 0,5 DF A DAY, THEN 1/4 DF A DAY THEN DISCONTINUED
     Route: 065
     Dates: start: 20140117, end: 20140309
  5. PANGROL [Suspect]
     Active Substance: PANCRELIPASE
     Indication: ABDOMINAL DISCOMFORT
     Route: 065
     Dates: start: 2013
  6. FRISIUM [Suspect]
     Active Substance: CLOBAZAM
     Dosage: OCCASIONALY WHEN PROBLEMS ARE PRESENT
     Route: 065
     Dates: start: 20140117
  7. DALACIN [Suspect]
     Active Substance: CLINDAMYCIN
     Indication: DENTAL CARE
     Route: 065
     Dates: start: 2012, end: 2012
  8. VALDOXAN [Suspect]
     Active Substance: AGOMELATINE
     Indication: IRRITABLE BOWEL SYNDROME
     Route: 065
     Dates: start: 20131216, end: 20131227
  9. MIABENE [Concomitant]
     Active Substance: MIANSERIN HYDROCHLORIDE
     Dosage: WITH 2-3 WEEKS OVERLAP WITH EUTHYROX, 3 MONTHS OF USE WITHOUT ADVERSE REACTION
  10. PANZYNORM [Suspect]
     Active Substance: PANCRELIPASE
     Route: 065
  11. VERAL [Suspect]
     Active Substance: DICLOFENAC SODIUM
     Route: 065
  12. PANCREOLAN FORTE [Suspect]
     Active Substance: DIASTASE\LIPASE\PROTEASE
     Route: 065
  13. EUTHYROX [Suspect]
     Active Substance: LEVOTHYROXINE SODIUM
     Indication: THYROID DISORDER
     Dosage: 50.0UG UNKNOWN
     Route: 065
     Dates: start: 200204, end: 2007
  14. LETROX [Concomitant]
     Active Substance: LEVOTHYROXINE SODIUM
     Indication: THYROID DISORDER
     Dates: start: 2007

REACTIONS (9)
  - Abdominal pain lower [Unknown]
  - Gastrointestinal disorder [Unknown]
  - Abnormal loss of weight [Unknown]
  - Abdominal pain upper [Unknown]
  - Feeding disorder [Unknown]
  - Lactose intolerance [Unknown]
  - Medication error [Unknown]
  - Abnormal dreams [Recovered/Resolved]
  - Flatulence [Unknown]

NARRATIVE: CASE EVENT DATE: 2001
